FAERS Safety Report 14067096 (Version 1)
Quarter: 2017Q4

REPORT INFORMATION
  Report Type: Spontaneous
  Country: US (occurrence: US)
  Receive Date: 20171010
  Receipt Date: 20171010
  Transmission Date: 20180321
  Serious: Yes (Hospitalization)
  Sender: FDA-Public Use
  Company Number: US-SUN PHARMACEUTICAL INDUSTRIES LTD-2017US-151646

PATIENT
  Age: 70 Year
  Sex: Male

DRUGS (2)
  1. RISPERIDONE. [Suspect]
     Active Substance: RISPERIDONE
     Indication: ABNORMAL BEHAVIOUR
     Dosage: UNK
     Route: 065
  2. CLONAZEPAM. [Suspect]
     Active Substance: CLONAZEPAM
     Indication: ABNORMAL BEHAVIOUR
     Dosage: UNK
     Route: 065

REACTIONS (3)
  - Therapeutic response decreased [Unknown]
  - Chorea [Recovered/Resolved]
  - Cognitive disorder [Recovered/Resolved]
